FAERS Safety Report 8019997-6 (Version None)
Quarter: 2011Q4

REPORT INFORMATION
  Report Type: 
  Country: None (occurrence: None)
  Receive Date: 20111227
  Receipt Date: 20111216
  Transmission Date: 20120403
  Serious: Yes (Death, Life-Threatening, Hospitalization)
  Sender: FDA-Public Use
  Company Number: 201112IM002240

PATIENT
  Age: 10 Year
  Sex: Male
  Weight: 32 kg

DRUGS (4)
  1. RIFAMPICIN [Concomitant]
  2. PYRAZINAMIDE [Concomitant]
  3. INTERFERON GAMMA NOS [Suspect]
     Indication: CHRONIC GRANULOMATOUS DISEASE
     Dosage: 50 UG/M2, SUBCUTANEOUS
     Route: 058
     Dates: start: 20050101
  4. ISONIAZID [Concomitant]

REACTIONS (4)
  - SHOCK [None]
  - RESPIRATORY FAILURE [None]
  - PNEUMONIA INFLUENZAL [None]
  - CARDIAC FAILURE [None]
